FAERS Safety Report 9418862 (Version 2)
Quarter: 2013Q3

REPORT INFORMATION
  Report Type: Spontaneous
  Country: GB (occurrence: GB)
  Receive Date: 20130725
  Receipt Date: 20130805
  Transmission Date: 20140515
  Serious: Yes (Other)
  Sender: FDA-Public Use
  Company Number: GB-JNJFOC-20130711795

PATIENT
  Sex: Male
  Weight: 120 kg

DRUGS (3)
  1. STELARA [Suspect]
     Indication: PSORIASIS
     Route: 058
     Dates: start: 201203
  2. METHOTREXATE [Suspect]
     Indication: PSORIASIS
     Route: 048
     Dates: end: 201306
  3. CHOLECALCIFEROL [Concomitant]
     Indication: OSTEOPOROSIS
     Route: 048

REACTIONS (2)
  - Hepatic steatosis [Unknown]
  - Psoriasis [Not Recovered/Not Resolved]
